FAERS Safety Report 8406553-0 (Version None)
Quarter: 2012Q2

REPORT INFORMATION
  Report Type: 
  Country: None (occurrence: None)
  Receive Date: 20120604
  Receipt Date: 20120525
  Transmission Date: 20120825
  Serious: Yes (Other)
  Sender: FDA-Public Use
  Company Number: BR-SANOFI-AVENTIS-2012SA037583

PATIENT
  Age: 11 Year
  Sex: Male
  Weight: 34 kg

DRUGS (2)
  1. AUTOPEN 24 [Suspect]
     Indication: DEVICE THERAPY
     Dates: start: 20080101
  2. LANTUS [Suspect]
     Dosage: LANTUS CARTRIDGE 3 ML
     Route: 058
     Dates: start: 20080101

REACTIONS (3)
  - HYPERGLYCAEMIA [None]
  - UPPER LIMB FRACTURE [None]
  - FALL [None]
